FAERS Safety Report 26219001 (Version 1)
Quarter: 2025Q4

REPORT INFORMATION
  Report Type: Report from Study
  Country: US (occurrence: US)
  Receive Date: 20251231
  Receipt Date: 20251231
  Transmission Date: 20260118
  Serious: No
  Sender: PFIZER
  Company Number: US-PFIZER INC-202500249860

PATIENT
  Age: 16 Year
  Sex: Male

DRUGS (3)
  1. GENOTROPIN [Suspect]
     Active Substance: SOMATROPIN
     Indication: Short stature
     Dosage: 2.5MG (ALTERNATES 2.4MG AND 2.6MG)
  2. GENOTROPIN [Suspect]
     Active Substance: SOMATROPIN
     Dosage: 2.5MG (ALTERNATES 2.4MG AND 2.6MG)
  3. GENOTROPIN [Suspect]
     Active Substance: SOMATROPIN
     Dosage: 2.5 MG/DAY 7 DAYS/WEEK

REACTIONS (3)
  - Drug dose omission by device [Unknown]
  - Device mechanical issue [Unknown]
  - Device breakage [Unknown]

NARRATIVE: CASE EVENT DATE: 20251220
